FAERS Safety Report 8772869 (Version 1)
Quarter: 2012Q4

REPORT INFORMATION
  Report Type: 
  Country: PR (occurrence: PR)
  Receive Date: 20120907
  Receipt Date: 20120907
  Transmission Date: 20130627
  Serious: Yes (Other)
  Sender: FDA-Public Use
  Company Number: PR-ABBOTT-12P-131-0977014-00

PATIENT
  Sex: Female

DRUGS (1)
  1. HUMIRA [Suspect]
     Indication: PRODUCT USED FOR UNKNOWN INDICATION
     Route: 058

REACTIONS (1)
  - Non-Hodgkin^s lymphoma [Unknown]
